FAERS Safety Report 8223613-8 (Version None)
Quarter: 2012Q1

REPORT INFORMATION
  Report Type: 
  Country: None (occurrence: None)
  Receive Date: 20120321
  Receipt Date: 20120319
  Transmission Date: 20120608
  Serious: Yes (Other)
  Sender: FDA-Public Use
  Company Number: US-AMGEN-USASP2012016984

PATIENT
  Sex: Male
  Weight: 97.1 kg

DRUGS (14)
  1. PRAVASTATIN [Concomitant]
  2. PRAVASTATIN [Concomitant]
  3. MULTIVITAMIN                       /00097801/ [Concomitant]
  4. CARVEDILOL [Concomitant]
  5. SIMVASTATIN [Concomitant]
  6. HUMALOG [Concomitant]
     Indication: DIABETES MELLITUS
  7. DIGOXIN [Concomitant]
  8. TRAMADOL HCL [Concomitant]
  9. LANTUS [Concomitant]
     Indication: DIABETES MELLITUS
  10. NPLATE [Suspect]
     Indication: IDIOPATHIC THROMBOCYTOPENIC PURPURA
     Dosage: 2 MUG/KG, QWK
     Dates: start: 20070101
  11. DIGOXIN [Concomitant]
  12. TRAMADOL HCL [Concomitant]
  13. HUMALOG [Concomitant]
  14. LANTUS [Concomitant]

REACTIONS (4)
  - HEADACHE [None]
  - PLATELET COUNT DECREASED [None]
  - DRUG SPECIFIC ANTIBODY PRESENT [None]
  - DIZZINESS [None]
